FAERS Safety Report 13010412 (Version 3)
Quarter: 2017Q2

REPORT INFORMATION
  Report Type: Spontaneous
  Country: JP (occurrence: JP)
  Receive Date: 20161208
  Receipt Date: 20170424
  Transmission Date: 20170830
  Serious: Yes (Death, Hospitalization, Other)
  Sender: FDA-Public Use
  Company Number: JP-BAYER-2016-226748

PATIENT
  Age: 89 Year
  Sex: Male

DRUGS (3)
  1. TAKEPRON [Concomitant]
     Active Substance: LANSOPRAZOLE
     Indication: PROPHYLAXIS AGAINST GASTROINTESTINAL ULCER
     Dosage: 15 MG, QD
     Route: 048
     Dates: end: 20151213
  2. MAGLAX [Concomitant]
     Active Substance: MAGNESIUM OXIDE
     Dosage: 750 MG, QD
     Route: 048
     Dates: end: 20151213
  3. ACETYLSALICYLIC ACID({=100 MG) [Suspect]
     Active Substance: ASPIRIN
     Indication: CEREBROVASCULAR ACCIDENT PROPHYLAXIS
     Dosage: 100 MG, QD
     Route: 048
     Dates: start: 20150915, end: 20151213

REACTIONS (6)
  - Pancreatitis [None]
  - Blood pressure decreased [None]
  - Altered state of consciousness [Fatal]
  - Hydrocephalus [None]
  - Cerebral ventricular rupture [None]
  - Brain stem haemorrhage [Fatal]

NARRATIVE: CASE EVENT DATE: 20151214
